FAERS Safety Report 5224570-9 (Version None)
Quarter: 2007Q1

REPORT INFORMATION
  Report Type: 
  Country: None (occurrence: None)
  Receive Date: 20070126
  Receipt Date: 20070117
  Transmission Date: 20070707
  Serious: Yes (Other)
  Sender: FDA-Public Use
  Company Number: OSCN-PR-0701L-0029

PATIENT
  Sex: Male
  Weight: 75 kg

DRUGS (1)
  1. OMNISCAN [Suspect]
     Indication: DRUG USE FOR UNKNOWN INDICATION
     Dosage: 40 ML, SINGLE DOSE, I.V.
     Route: 042

REACTIONS (2)
  - HAEMODIALYSIS [None]
  - NEPHROGENIC FIBROSING DERMOPATHY [None]
